FAERS Safety Report 24292362 (Version 2)
Quarter: 2025Q3

REPORT INFORMATION
  Report Type: Report from Study
  Country: CA (occurrence: CA)
  Receive Date: 20240906
  Receipt Date: 20250916
  Transmission Date: 20251021
  Serious: Yes (Other)
  Sender: SANDOZ
  Company Number: CA-SANDOZ-SDZ2024CA076860

PATIENT
  Sex: Female

DRUGS (1)
  1. HYRIMOZ [Suspect]
     Active Substance: ADALIMUMAB-ADAZ
     Indication: Crohn^s disease
     Dosage: 40MG EVERY OTHER WEEK;EVERY TWO WEEK
     Route: 058
     Dates: start: 20221128

REACTIONS (3)
  - Crohn^s disease [Unknown]
  - Arthralgia [Unknown]
  - General physical health deterioration [Unknown]
